FAERS Safety Report 10843098 (Version 1)
Quarter: 2015Q1

REPORT INFORMATION
  Report Type: Report from Study
  Country: US (occurrence: US)
  Receive Date: 20150220
  Receipt Date: 20150220
  Transmission Date: 20150721
  Serious: No
  Sender: FDA-Public Use
  Company Number: US-ABBVIE-14P-163-1274099-00

PATIENT
  Age: 53 Year
  Sex: Female

DRUGS (15)
  1. METFORMIN [Concomitant]
     Active Substance: METFORMIN HYDROCHLORIDE
     Indication: DIABETES MELLITUS
  2. FOLIC ACID. [Concomitant]
     Active Substance: FOLIC ACID
     Indication: VITAMIN SUPPLEMENTATION
  3. ASPIRIN. [Concomitant]
     Active Substance: ASPIRIN
     Indication: PRODUCT USED FOR UNKNOWN INDICATION
  4. GINSENG [Concomitant]
     Indication: PRODUCT USED FOR UNKNOWN INDICATION
  5. HUMIRA [Suspect]
     Active Substance: ADALIMUMAB
     Indication: PSORIATIC ARTHROPATHY
     Route: 065
     Dates: start: 20140812, end: 20140923
  6. TRAMADOL [Concomitant]
     Active Substance: TRAMADOL
     Indication: PAIN
  7. ISONIAZID. [Concomitant]
     Active Substance: ISONIAZID
     Indication: EXPOSURE TO COMMUNICABLE DISEASE
  8. VITAMIN C [Concomitant]
     Active Substance: ASCORBIC ACID
     Indication: PRODUCT USED FOR UNKNOWN INDICATION
  9. OMEPRAZOLE. [Concomitant]
     Active Substance: OMEPRAZOLE
     Indication: GASTROOESOPHAGEAL REFLUX DISEASE
  10. METHOTREXATE [Concomitant]
     Active Substance: METHOTREXATE
     Indication: PSORIATIC ARTHROPATHY
  11. OMEGA 3 [Concomitant]
     Active Substance: OMEGA-3 FATTY ACIDS
     Indication: PRODUCT USED FOR UNKNOWN INDICATION
     Dosage: AT HOUR OF SLEEP
  12. VITAMIN B6 [Concomitant]
     Active Substance: PYRIDOXINE HYDROCHLORIDE
     Indication: PRODUCT USED FOR UNKNOWN INDICATION
  13. COQ10 [Concomitant]
     Active Substance: UBIDECARENONE
     Indication: PRODUCT USED FOR UNKNOWN INDICATION
  14. GINKGO [Concomitant]
     Active Substance: GINKGO
     Indication: PRODUCT USED FOR UNKNOWN INDICATION
  15. PROMETHAZINE [Concomitant]
     Active Substance: PROMETHAZINE\PROMETHAZINE HYDROCHLORIDE
     Indication: VOMITING

REACTIONS (24)
  - Pain [Unknown]
  - Tearfulness [Unknown]
  - Injection site bruising [Unknown]
  - Muscle spasms [Unknown]
  - Fatigue [Not Recovered/Not Resolved]
  - Hypertension [Recovering/Resolving]
  - Headache [Recovered/Resolved]
  - Dyspnoea [Unknown]
  - Drug effect decreased [Unknown]
  - Affect lability [Not Recovered/Not Resolved]
  - Drug ineffective [Not Recovered/Not Resolved]
  - Injection site discolouration [Unknown]
  - Feeling hot [Unknown]
  - Arthralgia [Unknown]
  - Anxiety [Unknown]
  - Decreased appetite [Recovered/Resolved]
  - Eating disorder [Not Recovered/Not Resolved]
  - Dizziness [Not Recovered/Not Resolved]
  - Rash pruritic [Unknown]
  - Diarrhoea [Unknown]
  - Feeling cold [Unknown]
  - Chest discomfort [Unknown]
  - Feeling cold [Unknown]
  - Pyrexia [Unknown]

NARRATIVE: CASE EVENT DATE: 20140812
